FAERS Safety Report 9336329 (Version 1)
Quarter: 2013Q2

REPORT INFORMATION
  Report Type: Spontaneous
  Country: JP (occurrence: JP)
  Receive Date: 20130607
  Receipt Date: 20130607
  Transmission Date: 20140414
  Serious: Yes (Other)
  Sender: FDA-Public Use
  Company Number: JP-009507513-1306JPN002435

PATIENT
  Age: 35 Year
  Sex: Male

DRUGS (2)
  1. REFLEX [Suspect]
     Dosage: UNK
     Route: 048
  2. REFLEX [Suspect]
     Dosage: 45 MG, UNK
     Route: 048

REACTIONS (2)
  - Loss of consciousness [Unknown]
  - Restlessness [Unknown]
